FAERS Safety Report 14061048 (Version 2)
Quarter: 2017Q4

REPORT INFORMATION
  Report Type: Spontaneous
  Country: FR (occurrence: FR)
  Receive Date: 20171007
  Receipt Date: 20171019
  Transmission Date: 20180321
  Serious: Yes (Life-Threatening)
  Sender: FDA-Public Use
  Company Number: FR-MERCK KGAA-2029273

PATIENT
  Age: 83 Year
  Sex: Female

DRUGS (8)
  1. EFFERALGAN [Suspect]
     Active Substance: ACETAMINOPHEN
     Route: 048
  2. NOVOTHYROX [Suspect]
     Active Substance: LEVOTHYROXINE SODIUM
     Indication: THYROIDECTOMY
     Route: 048
  3. ESTRAPATCH [Suspect]
     Active Substance: ESTRADIOL
     Route: 062
  4. FLECTOR [Suspect]
     Active Substance: DICLOFENAC EPOLAMINE
     Route: 003
  5. ALDACTONE [Suspect]
     Active Substance: SPIRONOLACTONE
     Route: 048
     Dates: start: 2010, end: 20170906
  6. DAFLON [Suspect]
     Active Substance: DIOSMIN\HESPERIDIN
     Route: 048
  7. DUPHASTON [Suspect]
     Active Substance: DYDROGESTERONE
     Route: 048
  8. SPAGULAX [Suspect]
     Active Substance: PLANTAGO OVATA SEED
     Route: 048

REACTIONS (4)
  - Blood thyroid stimulating hormone decreased [Not Recovered/Not Resolved]
  - Malaise [Recovered/Resolved]
  - Respiratory arrest [Recovered/Resolved]
  - Clonus [Recovered/Resolved]

NARRATIVE: CASE EVENT DATE: 20170907
